FAERS Safety Report 17592998 (Version 1)
Quarter: 2020Q1

REPORT INFORMATION
  Report Type: Not Available
  Country: US (occurrence: US)
  Receive Date: 20200327
  Receipt Date: 20200327
  Transmission Date: 20200409
  Serious: No
  Sender: FDA-Public Use
  Company Number: US-NEUROCRINE BIOSCIENCES INC.-2020NBI00934

PATIENT
  Age: 26 Year
  Sex: Female

DRUGS (1)
  1. INGREZZA [Suspect]
     Active Substance: VALBENAZINE
     Indication: TARDIVE DYSKINESIA
     Route: 048
     Dates: end: 202003

REACTIONS (4)
  - Dyskinesia [Unknown]
  - Irritability [Unknown]
  - Dysphagia [Unknown]
  - Trismus [Unknown]

NARRATIVE: CASE EVENT DATE: 202003
